FAERS Safety Report 23244250 (Version 1)
Quarter: 2023Q4

REPORT INFORMATION
  Report Type: Report from Study
  Country: US (occurrence: US)
  Receive Date: 20231130
  Receipt Date: 20231130
  Transmission Date: 20240109
  Serious: Yes (Other)
  Sender: FDA-Public Use
  Company Number: US-ALXN-A202311672AA

PATIENT
  Sex: Male

DRUGS (1)
  1. ULTOMIRIS [Suspect]
     Active Substance: RAVULIZUMAB-CWVZ
     Indication: Myasthenia gravis
     Dosage: UNK
     Route: 065

REACTIONS (9)
  - Haemorrhage [Unknown]
  - Limb crushing injury [Unknown]
  - Sneezing [Unknown]
  - Blood pressure decreased [Unknown]
  - Drug ineffective [Unknown]
  - Head injury [Unknown]
  - Gingival injury [Unknown]
  - Device physical property issue [Unknown]
  - Suspected COVID-19 [Unknown]
